FAERS Safety Report 9266595 (Version 2)
Quarter: 2013Q2

REPORT INFORMATION
  Report Type: Spontaneous
  Country: US (occurrence: US)
  Receive Date: 20130502
  Receipt Date: 20130621
  Transmission Date: 20140414
  Serious: Yes (Other)
  Sender: FDA-Public Use
  Company Number: US-AMGEN-USASP2013029817

PATIENT
  Age: 63 Year
  Sex: Female
  Weight: 88.89 kg

DRUGS (1)
  1. ENBREL [Suspect]
     Indication: PSORIATIC ARTHROPATHY
     Dosage: 50 MG, QWK
     Route: 058
     Dates: start: 20090201

REACTIONS (5)
  - Meniscus injury [Recovered/Resolved]
  - Gait disturbance [Not Recovered/Not Resolved]
  - Joint destruction [Not Recovered/Not Resolved]
  - Arthropathy [Recovered/Resolved]
  - Arthralgia [Not Recovered/Not Resolved]
